FAERS Safety Report 4316064-X (Version None)
Quarter: 2004Q1

REPORT INFORMATION
  Report Type: 
  Country: None (occurrence: None)
  Receive Date: 20040310
  Receipt Date: 20040220
  Transmission Date: 20041129
  Serious: Yes (Other)
  Sender: FDA-Public Use
  Company Number: GBWYE595720FEB04

PATIENT

DRUGS (1)
  1. EFFEXOR XR [Suspect]

REACTIONS (2)
  - COGWHEEL RIGIDITY [None]
  - FEELING JITTERY [None]
